FAERS Safety Report 7442448-7 (Version None)
Quarter: 2011Q2

REPORT INFORMATION
  Report Type: 
  Country: None (occurrence: None)
  Receive Date: 20110420
  Receipt Date: 20110325
  Transmission Date: 20111010
  Serious: No
  Sender: FDA-Public Use
  Company Number: CC11-0516

PATIENT
  Sex: Female

DRUGS (1)
  1. METRONIDAZOLE [Suspect]
     Indication: ROSACEA
     Dosage: APPLY ONE TIME DAILY
     Dates: start: 20110304

REACTIONS (1)
  - APPLICATION SITE RASH [None]
